FAERS Safety Report 16117094 (Version 1)
Quarter: 2019Q2

REPORT INFORMATION
  Report Type: Spontaneous
  Country: US (occurrence: US)
  Receive Date: 20190325
  Receipt Date: 20190325
  Transmission Date: 20190711
  Serious: Yes (Life-Threatening, Hospitalization, Other)
  Sender: FDA-Public Use
  Company Number: None

PATIENT
  Age: 42 Year
  Sex: Male

DRUGS (1)
  1. QUETIAPINE. [Suspect]
     Active Substance: QUETIAPINE

REACTIONS (6)
  - Suicidal ideation [None]
  - Anxiety [None]
  - Monoparesis [None]
  - Anger [None]
  - Panic attack [None]
  - Cerebrovascular accident [None]

NARRATIVE: CASE EVENT DATE: 20190322
